FAERS Safety Report 7542695-X (Version None)
Quarter: 2011Q2

REPORT INFORMATION
  Report Type: 
  Country: None (occurrence: None)
  Receive Date: 20110613
  Receipt Date: 20110530
  Transmission Date: 20111010
  Serious: Yes (Other)
  Sender: FDA-Public Use
  Company Number: US-JNJFOC-20110601750

PATIENT
  Age: 70 Year
  Sex: Female
  Weight: 53.07 kg

DRUGS (7)
  1. GINKGO BILOBA [Concomitant]
     Indication: DEMENTIA ALZHEIMER'S TYPE
     Route: 065
     Dates: start: 19860101
  2. SYMBICORT [Concomitant]
     Indication: ASTHMA
     Dosage: TAKING FOR 1 YEAR
     Route: 065
     Dates: start: 20100101
  3. VITAMIN D [Concomitant]
     Indication: NUTRITIONAL SUPPORT
     Route: 065
     Dates: start: 19860101
  4. ASCORBIC ACID [Concomitant]
     Indication: NUTRITIONAL SUPPORT
     Route: 065
     Dates: start: 19910101
  5. PROAIR HFA [Concomitant]
     Indication: ASTHMA
     Route: 065
     Dates: start: 20100101
  6. DIGOXIN [Concomitant]
     Indication: CARDIAC DISORDER
     Dosage: TAKING FOR 10 YEARS
     Route: 065
  7. LISTERINE NATURAL CITRUS MOUTHWASH [Suspect]
     Indication: PRODUCT USED FOR UNKNOWN INDICATION
     Dosage: 1/2 CAPFUL TWICE A DAY
     Route: 048

REACTIONS (3)
  - LIP BLISTER [None]
  - OROPHARYNGEAL BLISTERING [None]
  - LIP EXFOLIATION [None]
